FAERS Safety Report 8251491-X (Version None)
Quarter: 2012Q2

REPORT INFORMATION
  Report Type: 
  Country: None (occurrence: None)
  Receive Date: 20120402
  Receipt Date: 20110901
  Transmission Date: 20120825
  Serious: Yes (Hospitalization)
  Sender: FDA-Public Use
  Company Number: DE-PFIZER INC-2012079150

PATIENT
  Age: 36 Year
  Sex: Female

DRUGS (21)
  1. SOMATROPIN [Suspect]
     Dosage: 0.6 MG, 1X/DAY
     Dates: start: 20050817, end: 20090209
  2. HYDROCORTISONE [Concomitant]
     Indication: BLOOD CORTICOTROPHIN DECREASED
     Dosage: 10 MG, 1X/DAY
     Dates: start: 19870115, end: 20010914
  3. ESTRADIOL [Concomitant]
     Indication: BLOOD LUTEINISING HORMONE DECREASED
     Dosage: 2 MG, UNK
     Dates: start: 19920615
  4. PRASTERONE [Concomitant]
     Dosage: 50 MG, 1X/DAY
     Dates: start: 20070724
  5. LEVOTHYROXINE [Concomitant]
     Indication: BLOOD THYROID STIMULATING HORMONE DECREASED
     Dosage: 150 UG, 1X/DAY
     Dates: start: 19870115, end: 20050816
  6. DESMOPRESSIN [Concomitant]
     Indication: BLOOD ANTIDIURETIC HORMONE DECREASED
     Dosage: 0.1 ML, 1X/DAY
     Dates: start: 19870115
  7. SOMATROPIN [Suspect]
     Indication: HYPOPITUITARISM
     Dosage: 0.3 MG, 1X/DAY
     Dates: start: 19951110, end: 19960221
  8. SOMATROPIN [Suspect]
     Dosage: 0.67 MG, 1X/DAY
     Dates: start: 19980421, end: 19981001
  9. HYDROCORTISONE [Concomitant]
     Dosage: 15 MG, 1X/DAY
     Dates: start: 20010915, end: 20030630
  10. SOMATROPIN [Suspect]
     Dosage: 0.53 MG, 1X/DAY
     Dates: start: 19970404, end: 19980420
  11. SOMATROPIN [Suspect]
     Dosage: 0.3 MG, 1X/DAY
     Dates: start: 20090210
  12. PRASTERONE [Concomitant]
     Indication: BLOOD CORTICOTROPHIN DECREASED
     Dosage: 25 MG, 1X/DAY
     Dates: start: 20050817, end: 20070723
  13. HYDROCORTISONE [Concomitant]
     Dosage: 10 MG, 1X/DAY
     Dates: start: 20030701, end: 20050816
  14. LEVOTHYROXINE [Concomitant]
     Dosage: 125 UG, 1X/DAY
     Dates: start: 20050817, end: 20090413
  15. SOMATROPIN [Suspect]
     Dosage: 0.5 MG, 1X/DAY
     Dates: start: 19960222, end: 19970403
  16. SOMATROPIN [Suspect]
     Dosage: 0.8 MG, 1X/DAY
     Dates: start: 19981002, end: 20050816
  17. LEVOTHYROXINE SODIUM [Concomitant]
     Indication: BLOOD THYROID STIMULATING HORMONE DECREASED
     Dosage: 150 UG, 1X/DAY
  18. HYDROCORTISONE [Concomitant]
     Dosage: 20 MG, 1X/DAY
     Dates: start: 20050817
  19. NORETHISTERONE ACETATE [Concomitant]
     Indication: BLOOD LUTEINISING HORMONE DECREASED
     Dosage: 1 MG, UNK
     Dates: start: 19920615
  20. NORETHISTERONE ACETATE [Concomitant]
     Indication: BLOOD FOLLICLE STIMULATING HORMONE DECREASED
  21. ESTRADIOL [Concomitant]
     Indication: BLOOD FOLLICLE STIMULATING HORMONE DECREASED

REACTIONS (1)
  - LIGAMENT SPRAIN [None]
